FAERS Safety Report 5880585-9 (Version None)
Quarter: 2008Q3

REPORT INFORMATION
  Report Type: 
  Country: None (occurrence: None)
  Receive Date: 20080912
  Receipt Date: 20080603
  Transmission Date: 20090109
  Serious: Yes (Hospitalization)
  Sender: FDA-Public Use
  Company Number: US-ABBOTT-08P-163-0454900-00

PATIENT
  Sex: Male
  Weight: 84.444 kg

DRUGS (3)
  1. HUMIRA [Suspect]
     Indication: CROHN'S DISEASE
     Dosage: LOADING DOSE
     Route: 058
     Dates: start: 20070627, end: 20080520
  2. PREGABALIN [Suspect]
     Indication: PAIN
     Route: 048
  3. DARVOCET-N 100 [Concomitant]
     Indication: PAIN
     Route: 048

REACTIONS (6)
  - CHEST PAIN [None]
  - GAIT DISTURBANCE [None]
  - PAIN IN EXTREMITY [None]
  - PARAESTHESIA [None]
  - SPINAL DISORDER [None]
  - THORACIC OUTLET SYNDROME [None]
